FAERS Safety Report 5870599-7 (Version None)
Quarter: 2008Q3

REPORT INFORMATION
  Report Type: 
  Country: None (occurrence: None)
  Receive Date: 20080904
  Receipt Date: 20080828
  Transmission Date: 20090109
  Serious: Yes (Death)
  Sender: FDA-Public Use
  Company Number: A0745984A

PATIENT
  Age: 87 Year
  Sex: Male
  Weight: 58 kg

DRUGS (4)
  1. SERETIDE DISKUS [Suspect]
     Indication: PULMONARY FIBROSIS
     Dates: start: 20070801, end: 20080731
  2. PREDNISONE [Concomitant]
     Dates: start: 20050101, end: 20080731
  3. INSULIN [Concomitant]
     Dates: start: 20060101, end: 20080731
  4. APROZIDE [Concomitant]
     Dates: start: 20050101, end: 20080731

REACTIONS (1)
  - RESPIRATORY FAILURE [None]
